FAERS Safety Report 18916360 (Version 1)
Quarter: 2021Q1

REPORT INFORMATION
  Report Type: Spontaneous
  Country: EG (occurrence: EG)
  Receive Date: 20210219
  Receipt Date: 20210219
  Transmission Date: 20210420
  Serious: Yes (Other)
  Sender: FDA-Public Use
  Company Number: EG-PFIZER INC-2021154932

PATIENT
  Sex: Male

DRUGS (7)
  1. RISEK [Concomitant]
     Dosage: 40 MG
     Route: 042
     Dates: start: 20201208
  2. DINITRA [Concomitant]
     Dosage: 10 MG
     Route: 060
     Dates: start: 20201208
  3. IRINOTECAN HCL [Suspect]
     Active Substance: IRINOTECAN HYDROCHLORIDE
     Indication: COLON CANCER
     Dosage: 300 MG (WITH CONCENTRATION OF 100MG AS IV)
     Route: 042
     Dates: start: 20201208, end: 20201209
  4. UTORAL [Concomitant]
     Active Substance: FLUOROURACIL
     Indication: COLON CANCER
     Dosage: 700 MG (AS IV BOLUS)
     Route: 042
     Dates: start: 20201208, end: 20201209
  5. UTORAL [Concomitant]
     Active Substance: FLUOROURACIL
     Dosage: 4300 MG (IV DRIP WITH CONCENTRATION OF 500MG)
     Route: 042
     Dates: start: 20201208, end: 20201209
  6. GRANITRYL [Concomitant]
     Dosage: 3 MG
     Route: 042
     Dates: start: 20201208
  7. NYRIN [Concomitant]
     Active Substance: LEUCOVORIN CALCIUM
     Indication: COLON CANCER
     Dosage: 300 MG (WITH CONCENTRATION OF 50MG AS IV)
     Route: 042
     Dates: start: 20201208, end: 20201209

REACTIONS (3)
  - Somnolence [Recovered/Resolved]
  - Seizure [Recovered/Resolved]
  - Fall [Recovered/Resolved]

NARRATIVE: CASE EVENT DATE: 20201209
